FAERS Safety Report 6603930-5 (Version None)
Quarter: 2010Q1

REPORT INFORMATION
  Report Type: 
  Country: None (occurrence: None)
  Receive Date: 20100226
  Receipt Date: 20090320
  Transmission Date: 20100710
  Serious: No
  Sender: FDA-Public Use
  Company Number: A0774584A

PATIENT
  Age: 35 Year
  Sex: Female

DRUGS (4)
  1. LAMICTAL CD [Suspect]
     Dosage: 150MG PER DAY
     Route: 048
     Dates: start: 20090101
  2. WELLBUTRIN SR [Concomitant]
     Route: 048
  3. PROPRANOLOL [Concomitant]
  4. ASPIRIN [Concomitant]

REACTIONS (8)
  - DIZZINESS [None]
  - FEELING JITTERY [None]
  - HEADACHE [None]
  - PAIN IN JAW [None]
  - PARAESTHESIA [None]
  - PRURITUS [None]
  - RASH [None]
  - SINUS HEADACHE [None]
